FAERS Safety Report 24243208 (Version 1)
Quarter: 2024Q3

REPORT INFORMATION
  Report Type: Spontaneous
  Country: US (occurrence: US)
  Receive Date: 20240823
  Receipt Date: 20240823
  Transmission Date: 20241017
  Serious: Yes (Hospitalization, Other)
  Sender: AMGEN
  Company Number: US-AMGEN-USASP2024164604

PATIENT

DRUGS (1)
  1. PREDNISONE [Suspect]
     Active Substance: PREDNISONE
     Indication: Polymyalgia rheumatica
     Dosage: UNK
     Route: 065

REACTIONS (24)
  - Cardiac failure [Unknown]
  - Cataract [Unknown]
  - Myocardial infarction [Unknown]
  - Glaucoma [Unknown]
  - Angina unstable [Unknown]
  - Osteonecrosis [Unknown]
  - Delirium [Unknown]
  - Arrhythmia [Unknown]
  - Cerebrovascular accident [Unknown]
  - Percutaneous coronary intervention [Unknown]
  - Coronary artery bypass [Unknown]
  - Nosocomial infection [Unknown]
  - Fracture [Unknown]
  - Gastrointestinal disorder [Unknown]
  - Asthenia [Unknown]
  - Psychotic disorder [Unknown]
  - Mania [Unknown]
  - Agitation [Unknown]
  - Affect lability [Unknown]
  - Catatonia [Unknown]
  - Depersonalisation/derealisation disorder [Unknown]
  - Osteoporosis [Unknown]
  - Osteopenia [Unknown]
  - Myopathy [Unknown]
